FAERS Safety Report 24059941 (Version 6)
Quarter: 2024Q4

REPORT INFORMATION
  Report Type: Spontaneous
  Country: KR (occurrence: KR)
  Receive Date: 20240708
  Receipt Date: 20241226
  Transmission Date: 20250115
  Serious: Yes (Life-Threatening, Hospitalization, Other)
  Sender: CELLTRION
  Company Number: KR-CELLTRION INC.-2024KR015857

PATIENT

DRUGS (54)
  1. RITUXIMAB [Suspect]
     Active Substance: RITUXIMAB
     Indication: Mantle cell lymphoma
     Dosage: UNK/ TRUXIMA 100 MG
     Dates: start: 20240511, end: 20240521
  2. RITUXIMAB [Suspect]
     Active Substance: RITUXIMAB
     Dosage: UNK/ TRUXIMA 500 MG
     Dates: start: 20240610, end: 20240614
  3. RITUXIMAB [Suspect]
     Active Substance: RITUXIMAB
     Dosage: 633 MG, ONCE / CYCLE 1 : D1  (DOSE/DAY: 375 MG/M2)
     Route: 042
     Dates: start: 20240521, end: 20240521
  4. RITUXIMAB [Suspect]
     Active Substance: RITUXIMAB
     Dosage: 633 MG, ONCE / CYCLE 2 : D1 (DOSE/DAY: 375 MG/M2)
     Route: 042
     Dates: start: 20240617, end: 20240617
  5. RITUXIMAB [Suspect]
     Active Substance: RITUXIMAB
     Dosage: 633 MG ONCE INJECTION
     Route: 042
     Dates: start: 20240815, end: 20240815
  6. RITUXIMAB [Suspect]
     Active Substance: RITUXIMAB
     Dosage: 633 MG ONCE INJECTION
     Route: 042
     Dates: start: 20241009, end: 20241009
  7. CYTARABINE [Suspect]
     Active Substance: CYTARABINE
     Indication: Mantle cell lymphoma
     Dosage: UNK
     Dates: start: 20240610, end: 20240614
  8. CYTARABINE [Suspect]
     Active Substance: CYTARABINE
     Dosage: 835 MG, ONCE / CYCLE 2 : D2
     Route: 042
     Dates: start: 20240618, end: 20240618
  9. CYTARABINE [Suspect]
     Active Substance: CYTARABINE
     Dosage: 835 MG, ONCE / CYCLE 2 : D3
     Route: 042
     Dates: start: 20240619, end: 20240619
  10. CYTARABINE [Suspect]
     Active Substance: CYTARABINE
     Dosage: 835 MG, ONCE / CYCLE 2 : D4
     Route: 042
     Dates: start: 20240620, end: 20240620
  11. CYTARABINE [Suspect]
     Active Substance: CYTARABINE
     Dosage: 722MG, ONCE, INJECTION
     Route: 042
     Dates: start: 20240815, end: 20240817
  12. CYTARABINE [Suspect]
     Active Substance: CYTARABINE
     Dosage: 633.8MG, ONCE, INJECTION
     Route: 042
     Dates: start: 20241010, end: 20241012
  13. BENDAMUSTINE [Suspect]
     Active Substance: BENDAMUSTINE
     Indication: Product used for unknown indication
     Dosage: UNK
     Dates: start: 20240511, end: 20240521
  14. BENDAMUSTINE [Suspect]
     Active Substance: BENDAMUSTINE
     Dosage: 116 MG, ONCE
     Route: 042
     Dates: start: 20240518, end: 20240518
  15. BENDAMUSTINE [Suspect]
     Active Substance: BENDAMUSTINE
     Dosage: 116 MG, ONCE
     Route: 042
     Dates: start: 20240519, end: 20240519
  16. BENDAMUSTINE [Suspect]
     Active Substance: BENDAMUSTINE
     Dosage: 152 MG, ONCE
     Route: 042
     Dates: start: 20240521, end: 20240521
  17. BENDAMUSTINE [Suspect]
     Active Substance: BENDAMUSTINE
     Dosage: 152 MG, ONCE / CYCLE 1 : D2 (DOSE/DAY: 70 MG/M2)
     Route: 042
     Dates: start: 20240522, end: 20240522
  18. BENDAMUSTINE [Suspect]
     Active Substance: BENDAMUSTINE
     Dosage: 152 MG, ONCE / CYCLE 1 : D3 (DOSE/DAY: 70 MG/M2)
     Route: 042
     Dates: start: 20240523
  19. BENDAMUSTINE [Suspect]
     Active Substance: BENDAMUSTINE
     Dosage: 152 MG, ONCE / CYCLE 2 : D2 (DOSE/DAY: 70 MG/M2)
     Route: 042
     Dates: start: 20240618
  20. BENDAMUSTINE [Suspect]
     Active Substance: BENDAMUSTINE
     Dosage: 152 MG, ONCE / CYCLE 2 : D3 (DOSE/DAY: 70 MG/M2)
     Route: 042
     Dates: start: 20240619
  21. BENDAMUSTINE [Suspect]
     Active Substance: BENDAMUSTINE
     Dosage: 87MG, ONCE, INJECTION
     Route: 042
     Dates: start: 20240815, end: 20240816
  22. BENDAMUSTINE [Suspect]
     Active Substance: BENDAMUSTINE
     Dosage: 87MG, ONCE, INJECTION
     Route: 042
     Dates: start: 20241010, end: 20241011
  23. PEGFILGRASTIM [Suspect]
     Active Substance: PEGFILGRASTIM
     Indication: Product used for unknown indication
     Dosage: 6 MG, ONCE
     Route: 058
     Dates: start: 20240621, end: 20240621
  24. PEGFILGRASTIM [Suspect]
     Active Substance: PEGFILGRASTIM
     Dosage: 6MG, ONCE, INJECTION
     Route: 058
     Dates: start: 20240818, end: 20240818
  25. PEGFILGRASTIM [Suspect]
     Active Substance: PEGFILGRASTIM
     Dosage: 6MG, ONCE, INJECTION
     Route: 058
     Dates: start: 20241013, end: 20241013
  26. PHENIRAMIN [Concomitant]
     Indication: Premedication
     Dosage: 4 MG
     Route: 042
     Dates: start: 20240628, end: 20240629
  27. PHENIRAMIN [Concomitant]
     Dosage: 4 MG, 1 AMPOULE
     Route: 042
     Dates: start: 20240521, end: 20240521
  28. PHENIRAMIN [Concomitant]
     Dosage: 4 MG
     Route: 042
     Dates: start: 20240617, end: 20240617
  29. PHENIRAMIN [Concomitant]
     Dosage: 4 MG
     Route: 042
     Dates: start: 20240718, end: 20240718
  30. PHENIRAMIN [Concomitant]
     Dosage: 4MG/2ML/
     Route: 042
     Dates: start: 20240814, end: 20240814
  31. PHENIRAMIN [Concomitant]
     Dosage: 4 MG
     Route: 042
     Dates: start: 20240828, end: 20240828
  32. LAFUTIDINE [Concomitant]
     Active Substance: LAFUTIDINE
     Indication: Gastritis
     Dosage: 10 MG, BID
     Route: 048
     Dates: start: 20240617, end: 20240621
  33. LAFUTIDINE [Concomitant]
     Active Substance: LAFUTIDINE
     Indication: Prophylaxis
     Dosage: 10 MG
     Route: 048
     Dates: start: 20240814, end: 20240818
  34. LAFUTIDINE [Concomitant]
     Active Substance: LAFUTIDINE
     Indication: Prophylaxis
  35. TRAMADOL HYDROCHLORIDE [Concomitant]
     Active Substance: TRAMADOL HYDROCHLORIDE
     Indication: Central venous catheterisation
     Dosage: 1 AMPOULE
     Route: 042
     Dates: start: 20240521, end: 20240521
  36. TRAMADOL HYDROCHLORIDE [Concomitant]
     Active Substance: TRAMADOL HYDROCHLORIDE
     Indication: Prophylaxis
  37. SULFAMETHOXAZOLE\TRIMETHOPRIM [Concomitant]
     Active Substance: SULFAMETHOXAZOLE\TRIMETHOPRIM
     Indication: Antibiotic therapy
     Dosage: 1 TABLET
     Route: 048
     Dates: start: 20240521
  38. SULFAMETHOXAZOLE\TRIMETHOPRIM [Concomitant]
     Active Substance: SULFAMETHOXAZOLE\TRIMETHOPRIM
     Indication: Prophylaxis
  39. ALLOPURINOL [Concomitant]
     Active Substance: ALLOPURINOL
     Indication: Antibiotic therapy
     Dosage: 10 MG TID
     Route: 048
     Dates: start: 20240521, end: 20240527
  40. ALLOPURINOL [Concomitant]
     Active Substance: ALLOPURINOL
     Indication: Prophylaxis
  41. ACETAMINOPHEN [Concomitant]
     Active Substance: ACETAMINOPHEN
     Indication: Premedication
     Dosage: 1 TABLET
     Route: 048
     Dates: start: 20240521, end: 20240521
  42. ACETAMINOPHEN [Concomitant]
     Active Substance: ACETAMINOPHEN
     Dosage: PRN
     Route: 048
     Dates: start: 20240630, end: 20240705
  43. ACETAMINOPHEN [Concomitant]
     Active Substance: ACETAMINOPHEN
     Dosage: UNK
     Route: 048
     Dates: start: 20240814, end: 20240814
  44. PALSERON [Concomitant]
     Indication: Premedication
     Dosage: 1 DF (1 VIAL)
     Route: 042
     Dates: start: 20240521, end: 20240521
  45. PALSERON [Concomitant]
     Dosage: 0.25 MG
     Route: 042
     Dates: start: 20240618, end: 20240618
  46. PALSERON [Concomitant]
     Dosage: 0.25 MG
     Route: 042
     Dates: start: 20240620, end: 20240620
  47. PALSERON [Concomitant]
     Dosage: 0.25 MG  (1 VIAL)
     Route: 042
     Dates: start: 20240718, end: 20240718
  48. XYZAL [Concomitant]
     Active Substance: LEVOCETIRIZINE DIHYDROCHLORIDE
     Indication: Rhinitis allergic
     Dosage: 1 DF (1 TABLET)
     Route: 048
     Dates: start: 20240517, end: 20240704
  49. XYZAL [Concomitant]
     Active Substance: LEVOCETIRIZINE DIHYDROCHLORIDE
     Indication: Urticaria
  50. METHYLON [METHYLPREDNISOLONE] [Concomitant]
     Indication: Premedication
     Dosage: 100 MG PO
     Route: 048
     Dates: start: 20240617, end: 20240617
  51. METHYLON [METHYLPREDNISOLONE] [Concomitant]
     Dosage: 4 MG PO
     Route: 048
     Dates: start: 20240718, end: 20240718
  52. METHYLON [METHYLPREDNISOLONE] [Concomitant]
     Dosage: 4 MG PO
     Route: 048
     Dates: start: 20240814, end: 20240814
  53. PRALIDOXIME [Interacting]
     Active Substance: PRALIDOXIME
     Indication: Pruritus
     Dosage: 10 MG
     Route: 048
     Dates: start: 20240718
  54. SANTEN FLUMETHOLON [Concomitant]
     Indication: Premedication
     Dosage: UNK
     Route: 061
     Dates: start: 20240618, end: 20240621

REACTIONS (5)
  - Platelet count decreased [Recovering/Resolving]
  - Neutrophil count decreased [Recovering/Resolving]
  - Tongue discomfort [Recovered/Resolved]
  - Chills [Recovered/Resolved]
  - Intentional product use issue [Unknown]

NARRATIVE: CASE EVENT DATE: 20240627
